FAERS Safety Report 11952531 (Version 1)
Quarter: 2016Q1

REPORT INFORMATION
  Report Type: Spontaneous
  Country: US (occurrence: US)
  Receive Date: 20160126
  Receipt Date: 20160126
  Transmission Date: 20160526
  Serious: No
  Sender: FDA-Public Use
  Company Number: US-DEXPHARM-20152156

PATIENT
  Age: 70 Year
  Sex: Female
  Weight: 67.12 kg

DRUGS (3)
  1. IBANDRONATE [Concomitant]
     Active Substance: IBANDRONATE SODIUM
     Dates: start: 201502
  2. OMEPRAZOLE DELAYED RELEASE [Suspect]
     Active Substance: OMEPRAZOLE
     Indication: OESOPHAGITIS
     Route: 048
     Dates: start: 20150922
  3. VITAMIN D [Concomitant]
     Active Substance: CHOLECALCIFEROL

REACTIONS (1)
  - Vaginal haemorrhage [Not Recovered/Not Resolved]

NARRATIVE: CASE EVENT DATE: 20151006
